FAERS Safety Report 16222352 (Version 1)
Quarter: 2019Q2

REPORT INFORMATION
  Report Type: Spontaneous
  Country: US (occurrence: US)
  Receive Date: 20190422
  Receipt Date: 20190422
  Transmission Date: 20190711
  Serious: Yes (Other)
  Sender: FDA-Public Use
  Company Number: US-ASTELLAS-2019US016079

PATIENT
  Age: 16 Year
  Sex: Female

DRUGS (5)
  1. PROGRAF [Suspect]
     Active Substance: TACROLIMUS\TACROLIMUS ANHYDROUS
     Indication: RENAL TRANSPLANT
     Dosage: UNK UNK, UNKNOWN FREQ.
     Route: 065
  2. PREDNISONE                         /00044702/ [Suspect]
     Active Substance: PREDNISONE
     Indication: RENAL TRANSPLANT
     Route: 065
  3. MYCOPHENOLATE MOFETIL. [Suspect]
     Active Substance: MYCOPHENOLATE MOFETIL
     Indication: RENAL TRANSPLANT
     Dosage: UNK UNK, UNKNOWN FREQ.
     Route: 065
  4. PREDNISONE                         /00044702/ [Suspect]
     Active Substance: PREDNISONE
     Route: 065
  5. PREDNISONE                         /00044702/ [Suspect]
     Active Substance: PREDNISONE
     Route: 065

REACTIONS (7)
  - Treatment noncompliance [Unknown]
  - Transplant rejection [Unknown]
  - Epstein-Barr virus infection [Unknown]
  - Histoplasmosis disseminated [Recovered/Resolved]
  - Chronic allograft nephropathy [Unknown]
  - Haemophagocytic lymphohistiocytosis [Recovered/Resolved]
  - Cytomegalovirus infection [Recovered/Resolved]
